FAERS Safety Report 7962264 (Version 3)
Quarter: 2013Q3

REPORT INFORMATION
  Report Type: Spontaneous
  Country: FR (occurrence: FR)
  Receive Date: 20110526
  Receipt Date: 20130709
  Transmission Date: 20140515
  Serious: Yes (Death, Hospitalization)
  Sender: FDA-Public Use
  Company Number: FR-PFIZER INC-K201100603

PATIENT
  Age: 59 Year
  Sex: Male

DRUGS (14)
  1. TRIATEC [Suspect]
     Dosage: 2.5 MG, 2X/DAY
     Route: 065
  2. APROVEL [Suspect]
     Dosage: 75 MG, 1X/DAY
  3. PROGRAF [Concomitant]
     Dosage: UNK
  4. CELLCEPT [Concomitant]
     Dosage: UNK
  5. TAHOR [Concomitant]
     Dosage: UNK
  6. ROCALTROL [Concomitant]
     Dosage: UNK
  7. ALLOPURINOL [Concomitant]
     Dosage: UNK
  8. KARDEGIC [Concomitant]
     Dosage: UNK
  9. SODIUM BICARBONATE [Concomitant]
     Dosage: UNK
  10. DELURSAN [Concomitant]
     Dosage: UNK
  11. UVEDOSE [Concomitant]
     Dosage: UNK
  12. INIPOMP [Concomitant]
     Dosage: UNK
  13. TIORFAN [Concomitant]
     Dosage: UNK
  14. ALUMINIUM HYDROXIDE-MAGNESIUM CARBONATE GEL/ALUMINIUM MAGNESIUM SILICA [Concomitant]
     Dosage: UNK

REACTIONS (4)
  - Pneumocystis jirovecii pneumonia [Fatal]
  - Respiratory failure [Fatal]
  - Renal failure acute [Recovered/Resolved]
  - Anuria [Recovered/Resolved]
